FAERS Safety Report 6916445-1 (Version None)
Quarter: 2010Q3

REPORT INFORMATION
  Report Type: 
  Country: None (occurrence: None)
  Receive Date: 20100810
  Receipt Date: 20100729
  Transmission Date: 20110219
  Serious: Yes (Disabling)
  Sender: FDA-Public Use
  Company Number: PHHY2010US42611

PATIENT
  Sex: Female
  Weight: 50 kg

DRUGS (7)
  1. RECLAST [Suspect]
     Dosage: UNK
     Dates: start: 20091230
  2. ADVIL LIQUI-GELS [Suspect]
     Dosage: FOUR TIMES A DAY
  3. CODEINE [Suspect]
     Dosage: FOUR TIMES A DAY
  4. SOMA [Suspect]
     Dosage: UNK
  5. OXYCODONE HCL [Suspect]
     Dosage: UNK
  6. OSCAL [Concomitant]
     Dosage: UNK
  7. MULTI-VITAMINS [Concomitant]
     Dosage: UNK

REACTIONS (13)
  - ABASIA [None]
  - ARTHRALGIA [None]
  - BACK PAIN [None]
  - BREAST PAIN [None]
  - CONDITION AGGRAVATED [None]
  - DIZZINESS [None]
  - EPICONDYLITIS [None]
  - HEADACHE [None]
  - INFLUENZA LIKE ILLNESS [None]
  - MYALGIA [None]
  - PAIN IN EXTREMITY [None]
  - PERIPHERAL COLDNESS [None]
  - PYREXIA [None]
